FAERS Safety Report 18164250 (Version 1)
Quarter: 2020Q3

REPORT INFORMATION
  Report Type: Report from Study
  Country: FR (occurrence: FR)
  Receive Date: 20200818
  Receipt Date: 20200818
  Transmission Date: 20201103
  Serious: Yes (Hospitalization, Other)
  Sender: FDA-Public Use
  Company Number: NVSC2020FR225032

PATIENT
  Age: 80 Year
  Sex: Female
  Weight: 72 kg

DRUGS (3)
  1. BYL719 [Suspect]
     Active Substance: ALPELISIB
     Indication: BREAST CANCER METASTATIC
     Dosage: 300 MG, QD(DAILY)
     Route: 048
     Dates: start: 20200130, end: 20200310
  2. METFORMINE [Suspect]
     Active Substance: METFORMIN HYDROCHLORIDE
     Indication: DIABETES MELLITUS
     Dosage: 1500 MG (3 X 500MG), QD
     Route: 048
     Dates: start: 20200306, end: 20200406
  3. BYL719 [Suspect]
     Active Substance: ALPELISIB
     Dosage: 150 MG, QD(DAILY)
     Route: 048
     Dates: start: 20200317, end: 20200406

REACTIONS (3)
  - Diarrhoea [Recovered/Resolved]
  - Diabetes mellitus [Unknown]
  - Decreased appetite [Recovered/Resolved]

NARRATIVE: CASE EVENT DATE: 20200310
